FAERS Safety Report 7131040-X (Version None)
Quarter: 2010Q4

REPORT INFORMATION
  Report Type: 
  Country: None (occurrence: None)
  Receive Date: 20101201
  Receipt Date: 20101124
  Transmission Date: 20110411
  Serious: Yes (Life-Threatening)
  Sender: FDA-Public Use
  Company Number: B0686871A

PATIENT
  Sex: Male

DRUGS (9)
  1. NIMBEX [Suspect]
     Indication: ANAESTHESIA
     Dosage: 16MG PER DAY
     Route: 042
     Dates: start: 20100914, end: 20100914
  2. ULTIVA [Suspect]
     Indication: ANAESTHESIA
     Dosage: 400MG PER DAY
     Route: 042
     Dates: start: 20100914, end: 20100914
  3. ZANTAC [Suspect]
     Indication: PROPHYLAXIS
     Dosage: 50MG PER DAY
     Route: 042
     Dates: start: 20100914, end: 20100914
  4. FENTANYL CITRATE [Suspect]
     Indication: ANAESTHESIA
     Dosage: .1MG PER DAY
     Route: 042
     Dates: start: 20100914, end: 20100914
  5. CEFAMEZIN [Suspect]
     Indication: ANTIBIOTIC PROPHYLAXIS
     Dosage: 200MG PER DAY
     Route: 042
  6. VALIUM [Suspect]
     Indication: PRODUCT USED FOR UNKNOWN INDICATION
     Dosage: 4MG PER DAY
     Route: 042
     Dates: start: 20100914, end: 20100914
  7. EBRANTIL [Suspect]
     Indication: HYPERTENSION
     Dosage: 4MG PER DAY
     Route: 042
     Dates: start: 20100914, end: 20100914
  8. KETOPROFEN [Suspect]
     Indication: PAIN
     Dosage: 100MG PER DAY
     Route: 042
     Dates: start: 20100914, end: 20100914
  9. INTRASTIGMINA [Suspect]
     Indication: URINARY RETENTION
     Dosage: 1MG PER DAY
     Route: 042
     Dates: start: 20100914, end: 20100914

REACTIONS (1)
  - LARYNGEAL OEDEMA [None]
